FAERS Safety Report 4805622-1 (Version None)
Quarter: 2005Q4

REPORT INFORMATION
  Report Type: 
  Country: None (occurrence: None)
  Receive Date: 20051018
  Receipt Date: 20051005
  Transmission Date: 20060501
  Serious: Yes (Hospitalization, Other)
  Sender: FDA-Public Use
  Company Number: 2005138561

PATIENT
  Sex: Female

DRUGS (13)
  1. DETROL LA [Suspect]
     Indication: STRESS INCONTINENCE
     Dosage: 4 MG (4 MG, 1 IN 1 D), ORAL
     Route: 048
  2. LIPITOR [Suspect]
     Indication: BLOOD CHOLESTEROL INCREASED
  3. SOMA [Concomitant]
  4. LEXAPRO [Concomitant]
  5. VERAPAMIL [Concomitant]
  6. MS CONTIN [Concomitant]
  7. LEVOTHYROXINE SODIUM [Concomitant]
  8. SYNTHROID [Concomitant]
  9. NEXIUM [Concomitant]
  10. XANAX [Concomitant]
  11. MONOPRIL [Concomitant]
  12. VICODIN (HYDROCODONE BITARTATE, PARACETAMOL) [Concomitant]
  13. PERCOCET [Concomitant]

REACTIONS (8)
  - AMNESIA [None]
  - BLOOD CHOLESTEROL INCREASED [None]
  - CHOLELITHIASIS [None]
  - DRUG INEFFECTIVE [None]
  - NOCTURIA [None]
  - SLEEP DISORDER [None]
  - WEIGHT DECREASED [None]
  - WEIGHT FLUCTUATION [None]
